FAERS Safety Report 4665614-2 (Version None)
Quarter: 2005Q2

REPORT INFORMATION
  Report Type: 
  Country: None (occurrence: None)
  Receive Date: 20050517
  Receipt Date: 20050503
  Transmission Date: 20051028
  Serious: No
  Sender: FDA-Public Use
  Company Number: TAP2005Q00743

PATIENT
  Age: 44 Year
  Sex: Female
  Weight: 73.4827 kg

DRUGS (6)
  1. LANSOPRAZOLE (LANSOPRAZOLE) (CAPSULES) [Suspect]
     Indication: GASTROOESOPHAGEAL REFLUX DISEASE
     Dosage: 30 MG, 1 IN 1 D, PER ORAL
     Route: 048
     Dates: start: 20050301, end: 20050322
  2. TOPAMAX [Suspect]
     Indication: CONVULSION
     Dosage: PER ORAL
     Route: 048
  3. EFFEXOR [Suspect]
     Indication: CONVULSION
     Dosage: PER ORAL
     Route: 048
  4. ZYRTEC [Concomitant]
  5. RHINOCORT [Concomitant]
  6. LEVLEN (EUGYNON) [Concomitant]

REACTIONS (2)
  - CONDITION AGGRAVATED [None]
  - CONVULSION [None]
